FAERS Safety Report 4658361-4 (Version None)
Quarter: 2005Q2

REPORT INFORMATION
  Report Type: 
  Country: None (occurrence: None)
  Receive Date: 20050511
  Receipt Date: 20050502
  Transmission Date: 20051028
  Serious: Yes (Hospitalization)
  Sender: FDA-Public Use
  Company Number: PE-BRISTOL-MYERS SQUIBB COMPANY-12953154

PATIENT
  Age: 35 Year
  Sex: Male

DRUGS (3)
  1. ATAZANAVIR [Suspect]
     Indication: HIV INFECTION
     Route: 048
     Dates: start: 20010101
  2. DIDANOSINE [Concomitant]
     Dates: start: 20010101
  3. ZIDOVUDINE [Concomitant]
     Dates: start: 20010101

REACTIONS (2)
  - HEADACHE [None]
  - NEUROSYPHILIS [None]
